FAERS Safety Report 8837457 (Version 2)
Quarter: 2012Q4

REPORT INFORMATION
  Report Type: 
  Country: US (occurrence: US)
  Receive Date: 20121012
  Receipt Date: 20121203
  Transmission Date: 20130627
  Serious: No
  Sender: FDA-Public Use
  Company Number: US-PFIZER INC-2012253398

PATIENT
  Age: 74 Year
  Sex: Male
  Weight: 72.56 kg

DRUGS (5)
  1. AMIODARONE [Suspect]
     Dosage: 200 mg, daily
     Route: 048
     Dates: start: 20120627
  2. ALTACE [Concomitant]
     Indication: HYPERTENSION
     Dosage: 5 mg, daily
  3. PROSCAR [Concomitant]
     Indication: BENIGN PROSTATIC HYPERPLASIA
     Dosage: 2.5 mg, daily
  4. CRESTOR [Concomitant]
     Indication: BLOOD CHOLESTEROL ABNORMAL
     Dosage: 10 mg, daily
  5. CLONAZEPAM [Concomitant]
     Indication: NERVOUS SYSTEM DISORDER
     Dosage: 0.5 mg, 1x/day

REACTIONS (3)
  - Oral discomfort [Not Recovered/Not Resolved]
  - Lip dry [Not Recovered/Not Resolved]
  - Glossodynia [Not Recovered/Not Resolved]
